FAERS Safety Report 23506544 (Version 2)
Quarter: 2024Q2

REPORT INFORMATION
  Report Type: Spontaneous
  Country: US (occurrence: US)
  Receive Date: 20240209
  Receipt Date: 20240402
  Transmission Date: 20240716
  Serious: Yes (Other)
  Sender: FDA-Public Use
  Company Number: US-MLMSERVICE-20240130-4798791-1

PATIENT
  Age: 32 Year
  Sex: Male

DRUGS (3)
  1. DEXTROMETHORPHAN HYDROBROMIDE\GUAIFENESIN [Suspect]
     Active Substance: DEXTROMETHORPHAN HYDROBROMIDE\GUAIFENESIN
     Indication: Suicide attempt
     Dosage: UNK
     Route: 065
     Dates: start: 2020
  2. DEXTROMETHORPHAN HYDROBROMIDE\GUAIFENESIN [Suspect]
     Active Substance: DEXTROMETHORPHAN HYDROBROMIDE\GUAIFENESIN
     Indication: Substance use
     Dosage: 42 DOSAGE FORM, SINGLE (ONE IN TOTAL)
     Route: 065
     Dates: start: 2023
  3. DEXTROMETHORPHAN HYDROBROMIDE\GUAIFENESIN [Suspect]
     Active Substance: DEXTROMETHORPHAN HYDROBROMIDE\GUAIFENESIN
     Indication: Intentional overdose

REACTIONS (8)
  - Nephrolithiasis [Unknown]
  - Azotaemia [Unknown]
  - Drug abuse [Unknown]
  - Suicide attempt [Unknown]
  - Poisoning [Unknown]
  - Chromaturia [Unknown]
  - Flank pain [Unknown]
  - Intentional overdose [Unknown]

NARRATIVE: CASE EVENT DATE: 20200101
